FAERS Safety Report 5004044-0 (Version None)
Quarter: 2006Q2

REPORT INFORMATION
  Report Type: 
  Country: None (occurrence: None)
  Receive Date: 20060517
  Receipt Date: 20060505
  Transmission Date: 20061013
  Serious: Yes (Hospitalization)
  Sender: FDA-Public Use
  Company Number: US-BRISTOL-MYERS SQUIBB COMPANY-13369293

PATIENT
  Age: 64 Year
  Sex: Female

DRUGS (1)
  1. ESTRADIOL [Suspect]

REACTIONS (2)
  - CHEST PAIN [None]
  - PULMONARY THROMBOSIS [None]
